FAERS Safety Report 5638703-3 (Version None)
Quarter: 2008Q1

REPORT INFORMATION
  Report Type: 
  Country: None (occurrence: None)
  Receive Date: 20080226
  Receipt Date: 20071128
  Transmission Date: 20080703
  Serious: No
  Sender: FDA-Public Use
  Company Number: A0696289A

PATIENT
  Age: 34 Year
  Sex: Female

DRUGS (6)
  1. IMITREX [Suspect]
     Indication: MIGRAINE
     Dosage: 6MG AS REQUIRED
     Route: 058
  2. PROVIGIL [Concomitant]
  3. LYRICA [Concomitant]
  4. METHADONE HCL [Concomitant]
  5. TOPAMAX [Concomitant]
  6. BENADRYL [Concomitant]

REACTIONS (4)
  - INJECTION SITE ERYTHEMA [None]
  - INJECTION SITE PAIN [None]
  - INJECTION SITE URTICARIA [None]
  - PHARYNGOLARYNGEAL PAIN [None]
